FAERS Safety Report 6406108-3 (Version None)
Quarter: 2009Q4

REPORT INFORMATION
  Report Type: 
  Country: None (occurrence: None)
  Receive Date: 20091019
  Receipt Date: 20091009
  Transmission Date: 20100525
  Serious: Yes (Hospitalization)
  Sender: FDA-Public Use
  Company Number: US-JNJFOC-20091003254

PATIENT
  Sex: Male
  Weight: 11.34 kg

DRUGS (3)
  1. TYLENOL (CAPLET) [Suspect]
     Route: 048
     Dates: start: 20090901, end: 20090901
  2. TYLENOL (CAPLET) [Suspect]
     Indication: MALAISE
     Route: 048
     Dates: start: 20090901, end: 20090901
  3. CHILDREN'S MOTRIN [Concomitant]
     Indication: DRUG USE FOR UNKNOWN INDICATION

REACTIONS (4)
  - INCOHERENT [None]
  - TRANSMISSION OF AN INFECTIOUS AGENT VIA A MEDICINAL PRODUCT [None]
  - UNRESPONSIVE TO STIMULI [None]
  - VOMITING [None]
